FAERS Safety Report 4388896-3 (Version None)
Quarter: 2004Q2

REPORT INFORMATION
  Report Type: 
  Country: None (occurrence: None)
  Receive Date: 20040628
  Receipt Date: 20040617
  Transmission Date: 20050107
  Serious: Yes (Death, Hospitalization)
  Sender: FDA-Public Use
  Company Number: 430003M04FRA

PATIENT
  Age: 57 Year
  Sex: Male

DRUGS (3)
  1. NOVANTRONE [Suspect]
     Indication: MULTIPLE SCLEROSIS
     Dosage: 20 MG, 1 IN 1 MONTHS, INTRAVENOUS
     Route: 042
     Dates: start: 20020915, end: 20030215
  2. REBIF [Suspect]
     Indication: MULTIPLE SCLEROSIS
     Dosage: 1, 1 IN 3 WEEK, SUBCUTANEOUS
     Route: 058
     Dates: start: 20030615, end: 20031215
  3. GLATIRAMER ACETATE [Suspect]
     Indication: MULTIPLE SCLEROSIS
     Dosage: 1, 1 IN 1 DAYS, SUBCUTANEOUS
     Route: 058
     Dates: start: 20040101, end: 20040121

REACTIONS (7)
  - ACUTE PROMYELOCYTIC LEUKAEMIA [None]
  - AGRANULOCYTOSIS [None]
  - CARDIAC ARREST [None]
  - INTESTINAL OBSTRUCTION [None]
  - PANCYTOPENIA [None]
  - PARAPLEGIA [None]
  - PARESIS [None]
